FAERS Safety Report 13275723 (Version 2)
Quarter: 2017Q2

REPORT INFORMATION
  Report Type: Spontaneous
  Country: IE (occurrence: IE)
  Receive Date: 20170228
  Receipt Date: 20170601
  Transmission Date: 20170830
  Serious: Yes (Other)
  Sender: FDA-Public Use
  Company Number: IE-009507513-1702IRL011332

PATIENT
  Age: 22 Year
  Sex: Female

DRUGS (2)
  1. IMPLANON [Suspect]
     Active Substance: ETONOGESTREL
     Indication: CONTRACEPTION
     Dosage: 1 IMPLANT, 3 YEARS
     Route: 059
     Dates: start: 2014, end: 20170126
  2. IMPLANON [Suspect]
     Active Substance: ETONOGESTREL
     Dosage: 1 IMPLANT, CONSTANT
     Route: 058
     Dates: start: 20170126, end: 20170419

REACTIONS (9)
  - Muscular weakness [Recovering/Resolving]
  - Implant site pain [Recovering/Resolving]
  - Implant site fibrosis [Recovering/Resolving]
  - Product quality issue [Unknown]
  - Device deployment issue [Recovered/Resolved]
  - Pain in extremity [Recovering/Resolving]
  - Device breakage [Recovered/Resolved]
  - Implant site nerve injury [Recovering/Resolving]
  - Implant site infection [Recovering/Resolving]

NARRATIVE: CASE EVENT DATE: 2017
